APPROVED DRUG PRODUCT: PERCOCET
Active Ingredient: ACETAMINOPHEN; OXYCODONE HYDROCHLORIDE
Strength: 325MG;10MG
Dosage Form/Route: TABLET;ORAL
Application: A040330 | Product #004 | TE Code: AA
Applicant: ENDO OPERATIONS LTD
Approved: Nov 23, 2001 | RLD: No | RS: Yes | Type: RX